FAERS Safety Report 6816690-X (Version None)
Quarter: 2010Q2

REPORT INFORMATION
  Report Type: 
  Country: None (occurrence: None)
  Receive Date: 20100630
  Receipt Date: 20100615
  Transmission Date: 20101027
  Serious: Yes (Hospitalization)
  Sender: FDA-Public Use
  Company Number: 1000014657

PATIENT
  Age: 85 Year
  Sex: Female

DRUGS (5)
  1. MEMANTINE HCL [Suspect]
     Indication: DEMENTIA ALZHEIMER'S TYPE
     Dosage: 20 MG (20 MG, 1 IN 1 D), ORAL
     Route: 048
     Dates: start: 20100419, end: 20100523
  2. CITALOPRAM HYDROBROMIDE [Concomitant]
  3. VALSARTAN [Concomitant]
  4. SALMETEROL XINAFOATE / FLUTICASONE PROPIONATE [Concomitant]
  5. FUROSEMIDE [Concomitant]

REACTIONS (2)
  - AGITATION [None]
  - DISORIENTATION [None]
